FAERS Safety Report 10185975 (Version 1)
Quarter: 2014Q2

REPORT INFORMATION
  Report Type: Spontaneous
  Country: US (occurrence: US)
  Receive Date: 20140521
  Receipt Date: 20140521
  Transmission Date: 20141212
  Serious: No
  Sender: FDA-Public Use
  Company Number: US-PFIZER INC-2014138827

PATIENT
  Age: 58 Year
  Sex: Male
  Weight: 106.58 kg

DRUGS (2)
  1. FLUCONAZOLE [Suspect]
     Indication: FUNGAL INFECTION
     Dosage: UNK
  2. FLUCONAZOLE [Suspect]
     Indication: RASH

REACTIONS (1)
  - Drug ineffective [Unknown]
